FAERS Safety Report 10398956 (Version 2)
Quarter: 2014Q4

REPORT INFORMATION
  Report Type: Spontaneous
  Country: US (occurrence: US)
  Receive Date: 20140821
  Receipt Date: 20141009
  Transmission Date: 20150528
  Serious: Yes (Other)
  Sender: FDA-Public Use
  Company Number: US-PFIZER INC-2014232688

PATIENT
  Age: 59 Year
  Sex: Male
  Weight: 78.91 kg

DRUGS (1)
  1. LYRICA [Suspect]
     Active Substance: PREGABALIN
     Indication: NEUROPATHY PERIPHERAL
     Dosage: 75 MG, 3X/DAY
     Route: 048
     Dates: start: 2006

REACTIONS (2)
  - Prostate cancer [Unknown]
  - Amnesia [Unknown]

NARRATIVE: CASE EVENT DATE: 2010
